FAERS Safety Report 5264929-7 (Version None)
Quarter: 2007Q1

REPORT INFORMATION
  Report Type: 
  Country: None (occurrence: None)
  Receive Date: 20061117
  Receipt Date: 20051005
  Transmission Date: 20070707
  Serious: Yes (Hospitalization, Other)
  Sender: FDA-Public Use
  Company Number: US-JNJFOC-20050600608

PATIENT
  Age: 49 Year
  Sex: Female
  Weight: 80.2867 kg

DRUGS (2)
  1. LEVAQUIN [Suspect]
     Indication: GIARDIASIS
     Dosage: 500 MG
     Dates: start: 20040213
  2. FLAGYL [Concomitant]

REACTIONS (1)
  - TENDONITIS [None]
